FAERS Safety Report 6400433-8 (Version None)
Quarter: 2009Q4

REPORT INFORMATION
  Report Type: 
  Country: None (occurrence: None)
  Receive Date: 20091014
  Receipt Date: 20091002
  Transmission Date: 20100525
  Serious: Yes (Congenital Anomaly)
  Sender: FDA-Public Use
  Company Number: ES-SANOFI-SYNTHELABO-A01200910301

PATIENT
  Sex: Female

DRUGS (5)
  1. ADENOSINE [Concomitant]
  2. HEPARIN SODIUM [Concomitant]
     Dosage: UNK
  3. ABCIXIMAB [Suspect]
     Dosage: UNK
     Route: 065
  4. ASPIRIN [Suspect]
     Dosage: UNK
     Route: 065
  5. CLOPIDOGREL [Suspect]
     Dosage: UNK
     Route: 048

REACTIONS (4)
  - ATRIAL SEPTAL DEFECT [None]
  - CONGENITAL MITRAL VALVE INCOMPETENCE [None]
  - DRUG EXPOSURE DURING PREGNANCY [None]
  - VENTRICULAR SEPTAL DEFECT [None]
